FAERS Safety Report 8855430 (Version 1)
Quarter: 2012Q4

REPORT INFORMATION
  Report Type: 
  Country: US (occurrence: US)
  Receive Date: 20121023
  Receipt Date: 20121023
  Transmission Date: 20130627
  Serious: No
  Sender: FDA-Public Use
  Company Number: US-AMGEN-USASP2012057940

PATIENT
  Age: 69 Year
  Sex: Female
  Weight: 99.77 kg

DRUGS (14)
  1. ENBREL [Suspect]
     Indication: PSORIASIS
     Dosage: 50 mg, qwk
     Route: 058
     Dates: start: 20080220
  2. FEXOFENADINE [Concomitant]
     Dosage: 180 mg, UNK
  3. WARFARIN [Concomitant]
     Dosage: 5 mg, UNK
  4. CALCIUM CITRAMATE [Concomitant]
     Dosage: 1040 mg, UNK
  5. NYSTATIN [Concomitant]
     Dosage: 100000 UNK, UNK
  6. METRONIDAZOL                       /00012501/ [Concomitant]
     Dosage: 0.75%
  7. LOSARTAN [Concomitant]
     Dosage: 50 mg, UNK
  8. FOLIC ACID [Concomitant]
     Dosage: UNK
  9. DAYPRO [Concomitant]
     Dosage: 600 mg, UNK
  10. CRESTOR [Concomitant]
     Dosage: 20 mg, UNK
  11. SERTRALINE [Concomitant]
     Dosage: 50 mg, UNK
  12. DIGOXIN [Concomitant]
     Dosage: 0.25 mg, UNK
  13. TACLONEX [Concomitant]
     Dosage: UNK
  14. CALCIUM [Concomitant]
     Dosage: UNK

REACTIONS (1)
  - Psoriasis [Unknown]
